FAERS Safety Report 5741974-6 (Version None)
Quarter: 2008Q2

REPORT INFORMATION
  Report Type: 
  Country: None (occurrence: None)
  Receive Date: 20080515
  Receipt Date: 20080506
  Transmission Date: 20081010
  Serious: Yes (Hospitalization)
  Sender: FDA-Public Use
  Company Number: 2008-01568

PATIENT
  Age: 52 Year
  Sex: Male
  Weight: 95 kg

DRUGS (2)
  1. VELCADE [Suspect]
     Indication: PROSTATE CANCER
     Dosage: 1.6 MG/M2, INTRAVENOUS
     Route: 042
     Dates: start: 20080401
  2. TAXOTERE [Suspect]
     Indication: PROSTATE CANCER
     Dosage: 75 MG/M2, INTRAVENOUS
     Route: 042
     Dates: start: 20080325

REACTIONS (8)
  - DIZZINESS [None]
  - ELECTROLYTE IMBALANCE [None]
  - HYPERHIDROSIS [None]
  - MYOCARDIAL ISCHAEMIA [None]
  - PRESYNCOPE [None]
  - RHABDOMYOLYSIS [None]
  - SUPRAVENTRICULAR TACHYCARDIA [None]
  - TROPONIN INCREASED [None]
